FAERS Safety Report 21542205 (Version 2)
Quarter: 2022Q4

REPORT INFORMATION
  Report Type: Report from Study
  Country: CR (occurrence: CR)
  Receive Date: 20221102
  Receipt Date: 20221109
  Transmission Date: 20230113
  Serious: Yes (Other)
  Sender: FDA-Public Use
  Company Number: CR-BAYER-2022A151710

PATIENT
  Sex: Female

DRUGS (6)
  1. DIENOGEST\ESTRADIOL VALERATE [Suspect]
     Active Substance: DIENOGEST\ESTRADIOL VALERATE
     Indication: Polycystic ovaries
     Dosage: 1 PILL DAILY
     Route: 048
     Dates: start: 202209
  2. DIENOGEST\ESTRADIOL VALERATE [Suspect]
     Active Substance: DIENOGEST\ESTRADIOL VALERATE
     Indication: Heavy menstrual bleeding
  3. DIENOGEST\ESTRADIOL VALERATE [Suspect]
     Active Substance: DIENOGEST\ESTRADIOL VALERATE
     Indication: Contraception
  4. YAZ [Suspect]
     Active Substance: DROSPIRENONE\ETHINYL ESTRADIOL
     Indication: Polycystic ovaries
     Dosage: UNK
     Dates: start: 202107, end: 202108
  5. YAZ [Suspect]
     Active Substance: DROSPIRENONE\ETHINYL ESTRADIOL
     Indication: Heavy menstrual bleeding
  6. TINELLE [Concomitant]

REACTIONS (10)
  - Off label use [None]
  - Endometriosis [None]
  - Pelvic pain [None]
  - Proctalgia [None]
  - Abdominal pain [None]
  - Pelvic inflammatory disease [None]
  - Heavy menstrual bleeding [None]
  - Increased appetite [None]
  - Underweight [None]
  - Nausea [None]
